FAERS Safety Report 11409479 (Version 1)
Quarter: 2015Q3

REPORT INFORMATION
  Report Type: Spontaneous
  Country: CA (occurrence: CA)
  Receive Date: 20150824
  Receipt Date: 20150824
  Transmission Date: 20151125
  Serious: Yes (Other)
  Sender: FDA-Public Use
  Company Number: CA-BEH-2015053226

PATIENT
  Age: 75 Year
  Sex: Male
  Weight: 75 kg

DRUGS (7)
  1. PRIVIGEN [Suspect]
     Active Substance: HUMAN IMMUNOGLOBULIN G
     Dosage: 4/4 TRANSFUSED
     Route: 042
     Dates: start: 20150421, end: 20150421
  2. PRIVIGEN [Suspect]
     Active Substance: HUMAN IMMUNOGLOBULIN G
     Dosage: 4/4 TRANSFUSED
     Route: 042
     Dates: start: 20150421, end: 20150421
  3. PRIVIGEN [Suspect]
     Active Substance: HUMAN IMMUNOGLOBULIN G
     Dosage: PRESCRIPTION WAS FOR 2 G/KG FOR 3 DAYS AND 1 G/KG Q3W THEREAFTER FOR 4 MONTHS
     Route: 042
     Dates: start: 20150330
  4. PRIVIGEN [Suspect]
     Active Substance: HUMAN IMMUNOGLOBULIN G
     Route: 042
     Dates: start: 20150401
  5. PRIVIGEN [Suspect]
     Active Substance: HUMAN IMMUNOGLOBULIN G
     Indication: CHRONIC INFLAMMATORY DEMYELINATING POLYRADICULONEUROPATHY
     Dosage: 4/4 TRANSFUSED
     Route: 042
     Dates: start: 20150421, end: 20150421
  6. PRIVIGEN [Suspect]
     Active Substance: HUMAN IMMUNOGLOBULIN G
     Route: 042
     Dates: start: 20150512
  7. PRIVIGEN [Suspect]
     Active Substance: HUMAN IMMUNOGLOBULIN G
     Route: 042
     Dates: start: 20150331

REACTIONS (6)
  - Papule [Recovered/Resolved]
  - Blister [Recovered/Resolved]
  - Blood pressure increased [Recovered/Resolved]
  - Eczema [Recovered/Resolved]
  - Pruritus [Recovered/Resolved]
  - Erythema [Recovered/Resolved]

NARRATIVE: CASE EVENT DATE: 20150430
